FAERS Safety Report 6881120-9 (Version None)
Quarter: 2010Q3

REPORT INFORMATION
  Report Type: 
  Country: None (occurrence: None)
  Receive Date: 20100727
  Receipt Date: 20100719
  Transmission Date: 20110219
  Serious: No
  Sender: FDA-Public Use
  Company Number: 2009BI023491

PATIENT
  Age: 45 Year
  Sex: Female

DRUGS (3)
  1. TYSABRI [Suspect]
     Indication: MULTIPLE SCLEROSIS
     Route: 042
     Dates: start: 20090612, end: 20100223
  2. ARTHROTEC [Concomitant]
     Indication: ARTHRITIS
  3. EFFEXOR [Concomitant]
     Indication: DEPRESSION

REACTIONS (3)
  - ALOPECIA [None]
  - CHILLS [None]
  - CYANOSIS [None]
